FAERS Safety Report 17829132 (Version 1)
Quarter: 2020Q2

REPORT INFORMATION
  Report Type: Spontaneous
  Country: US (occurrence: US)
  Receive Date: 20200527
  Receipt Date: 20200527
  Transmission Date: 20200714
  Serious: Yes (Other)
  Sender: FDA-Public Use
  Company Number: None

PATIENT
  Age: 36 Year
  Sex: Female
  Weight: 69.75 kg

DRUGS (3)
  1. NADOLOL 20 MG TABLET (COMMON BRANDS: CORGARD) [Suspect]
     Active Substance: NADOLOL
     Indication: SUPRAVENTRICULAR TACHYCARDIA
     Route: 048
     Dates: start: 20200422, end: 20200527
  2. MAGNESIUM SUPPLEMENT [Concomitant]
  3. PROMETHAZINE [Concomitant]
     Active Substance: PROMETHAZINE HYDROCHLORIDE

REACTIONS (6)
  - Paradoxical drug reaction [None]
  - Discomfort [None]
  - Product substitution issue [None]
  - Arrhythmia [None]
  - Palpitations [None]
  - Condition aggravated [None]

NARRATIVE: CASE EVENT DATE: 20200526
